FAERS Safety Report 16384423 (Version 1)
Quarter: 2019Q2

REPORT INFORMATION
  Report Type: Spontaneous
  Country: FR (occurrence: FR)
  Receive Date: 20190603
  Receipt Date: 20190603
  Transmission Date: 20190711
  Serious: Yes (Hospitalization)
  Sender: FDA-Public Use
  Company Number: FR-PFIZER INC-WYEHQWYE317823MAY07

PATIENT
  Age: 55 Year
  Sex: Male

DRUGS (9)
  1. DIGOXIN. [Interacting]
     Active Substance: DIGOXIN
     Dosage: .25 MG,QD
     Route: 048
     Dates: start: 20060701, end: 20060927
  2. ZESTRIL [Concomitant]
     Active Substance: LISINOPRIL
     Dosage: UNK
     Route: 048
     Dates: start: 200602, end: 20061024
  3. MOPRAL [OMEPRAZOLE] [Concomitant]
     Dosage: UNK
     Route: 048
     Dates: start: 200602, end: 20061024
  4. INSULATARD [INSULIN HUMAN INJECTION, ISOPHANE] [Concomitant]
     Active Substance: INSULIN HUMAN
     Indication: TYPE 1 DIABETES MELLITUS
     Dosage: UNK
     Route: 058
     Dates: start: 200602, end: 20061024
  5. LASILIX [FUROSEMIDE] [Concomitant]
     Active Substance: FUROSEMIDE
     Dosage: UNK
     Route: 048
  6. BISOPROLOL FUMARATE. [Interacting]
     Active Substance: BISOPROLOL FUMARATE
     Dosage: UNK
     Route: 048
     Dates: start: 20061024, end: 20070309
  7. CORDARONE [Suspect]
     Active Substance: AMIODARONE HYDROCHLORIDE
     Dosage: 200 MG, QD
     Route: 048
     Dates: start: 20060505, end: 20060927
  8. INEXIUM [ESOMEPRAZOLE MAGNESIUM] [Concomitant]
     Active Substance: ESOMEPRAZOLE MAGNESIUM
     Dosage: UNK
     Route: 048
     Dates: start: 200602, end: 20061024
  9. BISOPROLOL FUMARATE. [Interacting]
     Active Substance: BISOPROLOL FUMARATE
     Dosage: 1.25 MG,QD
     Route: 048
     Dates: start: 20060701, end: 20060927

REACTIONS (3)
  - Drug interaction [Recovered/Resolved]
  - Nodal arrhythmia [Recovered/Resolved]
  - Bradycardia [Recovered/Resolved]

NARRATIVE: CASE EVENT DATE: 20060927
